FAERS Safety Report 5361523-4 (Version None)
Quarter: 2007Q2

REPORT INFORMATION
  Report Type: 
  Country: None (occurrence: None)
  Receive Date: 20070619
  Receipt Date: 20070608
  Transmission Date: 20071010
  Serious: Yes (Hospitalization)
  Sender: FDA-Public Use
  Company Number: PHBS2007JP09162

PATIENT
  Age: 56 Year
  Sex: Male

DRUGS (1)
  1. GLEEVEC [Suspect]
     Indication: ACUTE LYMPHOCYTIC LEUKAEMIA
     Route: 065

REACTIONS (6)
  - HAEMATEMESIS [None]
  - HAEMATOMA [None]
  - MUCOSAL EXFOLIATION [None]
  - NAUSEA [None]
  - OESOPHAGITIS [None]
  - VOMITING [None]
